FAERS Safety Report 21651029 (Version 3)
Quarter: 2023Q1

REPORT INFORMATION
  Report Type: Report from Study
  Country: US (occurrence: US)
  Receive Date: 20221128
  Receipt Date: 20230112
  Transmission Date: 20230418
  Serious: Yes (Other)
  Sender: FDA-Public Use
  Company Number: US-MYLANLABS-2022M1130705

PATIENT
  Age: 29 Year
  Sex: Female

DRUGS (1)
  1. AMNESTEEM [Suspect]
     Active Substance: ISOTRETINOIN
     Indication: Product used for unknown indication
     Dosage: 20 MILLIGRAM, (STOP DATE: UNKNOWN IN 2022)
     Route: 065
     Dates: start: 20220601

REACTIONS (2)
  - Maternal exposure during pregnancy [Unknown]
  - Xerosis [Unknown]

NARRATIVE: CASE EVENT DATE: 20221017
